FAERS Safety Report 5513801-3 (Version None)
Quarter: 2007Q4

REPORT INFORMATION
  Report Type: 
  Country: None (occurrence: None)
  Receive Date: 20071113
  Receipt Date: 20071102
  Transmission Date: 20080405
  Serious: Yes (Other)
  Sender: FDA-Public Use
  Company Number: HQWYE979012JUL04

PATIENT
  Sex: Female

DRUGS (6)
  1. PREMPRO [Suspect]
     Dosage: UNKNOWN
     Dates: start: 20000101, end: 20020701
  2. CYCRIN [Suspect]
  3. PROVERA [Suspect]
     Dosage: UNKNOWN
     Dates: start: 19870101, end: 19980101
  4. PREMARIN [Suspect]
  5. PREMPHASE 14/14 [Suspect]
     Dosage: UNKNOWN
     Dates: start: 19980101, end: 19990101
  6. PREMARIN [Suspect]
     Dosage: UNKNOWN
     Dates: start: 19870101, end: 19980101

REACTIONS (2)
  - MYOCARDIAL INFARCTION [None]
  - SYSTEMIC LUPUS ERYTHEMATOSUS [None]
